FAERS Safety Report 13985067 (Version 2)
Quarter: 2017Q4

REPORT INFORMATION
  Report Type: Spontaneous
  Country: US (occurrence: US)
  Receive Date: 20170919
  Receipt Date: 20171102
  Transmission Date: 20180321
  Serious: No
  Sender: FDA-Public Use
  Company Number: US-ASTRAZENECA-2017SE93747

PATIENT
  Age: 53 Year
  Sex: Female

DRUGS (1)
  1. PULMICORT FLEXHALER [Suspect]
     Active Substance: BUDESONIDE
     Indication: ASTHMA
     Dosage: 180 UG, TWO PUFFS TWICE A DAY
     Route: 055
     Dates: start: 201611

REACTIONS (7)
  - Intentional product misuse [Unknown]
  - Wrong technique in product usage process [Unknown]
  - Malaise [Unknown]
  - Dizziness [Unknown]
  - Feeling abnormal [Unknown]
  - Product taste abnormal [Unknown]
  - Device issue [Unknown]

NARRATIVE: CASE EVENT DATE: 20170907
